FAERS Safety Report 15947618 (Version 2)
Quarter: 2019Q1

REPORT INFORMATION
  Report Type: Spontaneous
  Country: US (occurrence: US)
  Receive Date: 20190211
  Receipt Date: 20190213
  Transmission Date: 20190417
  Serious: No
  Sender: FDA-Public Use
  Company Number: US-PFIZER INC-2019054323

PATIENT
  Age: 70 Year
  Sex: Male

DRUGS (7)
  1. ASPIRIN. [Suspect]
     Active Substance: ASPIRIN
     Dosage: UNK
  2. ALEVE [Suspect]
     Active Substance: NAPROXEN SODIUM
     Dosage: UNK
  3. ELIQUIS [Suspect]
     Active Substance: APIXABAN
     Dosage: UNK
  4. PLAVIX [Suspect]
     Active Substance: CLOPIDOGREL BISULFATE
     Dosage: UNK
  5. WARFARIN [Suspect]
     Active Substance: WARFARIN
     Dosage: UNK
  6. COUMARIN [Suspect]
     Active Substance: COUMARIN
     Dosage: UNK
  7. ADVIL [Suspect]
     Active Substance: IBUPROFEN
     Dosage: UNK

REACTIONS (1)
  - Drug hypersensitivity [Unknown]
